FAERS Safety Report 6461113-6 (Version None)
Quarter: 2009Q4

REPORT INFORMATION
  Report Type: 
  Country: None (occurrence: None)
  Receive Date: 20091130
  Receipt Date: 20091125
  Transmission Date: 20100525
  Serious: Yes (Hospitalization)
  Sender: FDA-Public Use
  Company Number: B0609045A

PATIENT
  Sex: Male

DRUGS (6)
  1. CLAVULIN [Suspect]
     Indication: NASOPHARYNGITIS
     Dosage: 1G PER DAY
     Route: 048
     Dates: start: 20091121, end: 20091121
  2. XANAX [Concomitant]
     Indication: DEPRESSION
  3. TOFRANIL [Concomitant]
  4. ASPIRIN [Concomitant]
  5. LENDORMIN [Concomitant]
     Indication: INSOMNIA
  6. COVERSYL [Concomitant]
     Indication: HYPERTENSION

REACTIONS (7)
  - ERYTHEMA [None]
  - LOSS OF CONSCIOUSNESS [None]
  - NAUSEA [None]
  - PRURITUS [None]
  - SYNCOPE [None]
  - TREMOR [None]
  - VOMITING [None]
